FAERS Safety Report 11037619 (Version 2)
Quarter: 2015Q3

REPORT INFORMATION
  Report Type: Spontaneous
  Country: US (occurrence: US)
  Receive Date: 20150416
  Receipt Date: 20150918
  Transmission Date: 20151125
  Serious: Yes (Hospitalization)
  Sender: FDA-Public Use
  Company Number: US-BAYER-2015-134523

PATIENT
  Age: 19 Year
  Sex: Female
  Weight: 58.96 kg

DRUGS (1)
  1. MIRENA [Suspect]
     Active Substance: LEVONORGESTREL
     Indication: CONTRACEPTION
     Dosage: 20 MCG/24HR, CONT
     Route: 015
     Dates: start: 20110131, end: 20110331

REACTIONS (4)
  - Pain [Not Recovered/Not Resolved]
  - Device issue [Not Recovered/Not Resolved]
  - Injury [Not Recovered/Not Resolved]
  - Uterine perforation [Not Recovered/Not Resolved]

NARRATIVE: CASE EVENT DATE: 201102
